FAERS Safety Report 16557443 (Version 8)
Quarter: 2021Q3

REPORT INFORMATION
  Report Type: Report from Study
  Country: GB (occurrence: GB)
  Receive Date: 20190711
  Receipt Date: 20210826
  Transmission Date: 20211014
  Serious: Yes (Death, Hospitalization)
  Sender: FDA-Public Use
  Company Number: GB-PFIZER INC-2019289135

PATIENT
  Age: 78 Year
  Sex: Female

DRUGS (40)
  1. FUROSEMIDE. [Concomitant]
     Active Substance: FUROSEMIDE
     Dosage: 20 MG, 1X/DAY
     Route: 048
  2. ASPIRIN (E.C.) [Concomitant]
     Active Substance: ASPIRIN
     Dosage: 75 MG, 1X/DAY
     Route: 048
     Dates: start: 20160403, end: 20160412
  3. ASPIRIN (E.C.) [Concomitant]
     Active Substance: ASPIRIN
     Dosage: 75 MG, 1X/DAY
     Route: 048
     Dates: start: 20150519
  4. SIMVASTATIN. [Concomitant]
     Active Substance: SIMVASTATIN
     Dosage: 20 MG, 1X/DAY
     Route: 048
     Dates: start: 20150519, end: 20160412
  5. DENOSUMAB [Suspect]
     Active Substance: DENOSUMAB
     Indication: CONSTIPATION
     Dosage: 120 MG, UNK
     Route: 042
     Dates: start: 20150530, end: 20150728
  6. ATORVASTATIN [Concomitant]
     Active Substance: ATORVASTATIN
     Dosage: 40 MG, 1X/DAY
     Route: 048
     Dates: start: 20160412
  7. LACTULOSE. [Concomitant]
     Active Substance: LACTULOSE
     Indication: PROPHYLAXIS
     Dosage: 15 ML, 2X/DAY
     Route: 048
     Dates: start: 20150716
  8. BENDROFLUMETHIAZID [Concomitant]
  9. EXEMESTANE. [Suspect]
     Active Substance: EXEMESTANE
     Indication: BREAST CANCER METASTATIC
     Dosage: 25 MG, 1X/DAY
     Route: 048
     Dates: start: 20160113
  10. TRIMETHOPRIM. [Concomitant]
     Active Substance: TRIMETHOPRIM
     Dosage: 200 MG, 2X/DAY
     Route: 048
     Dates: start: 20160411
  11. RAMIPRIL. [Concomitant]
     Active Substance: RAMIPRIL
     Dosage: 5 MG, 1X/DAY
     Route: 048
     Dates: start: 20150519, end: 20160412
  12. RAMIPRIL. [Concomitant]
     Active Substance: RAMIPRIL
     Dosage: 20 MG, 2X/DAY
     Route: 048
     Dates: start: 20160412
  13. TRAMADOL. [Concomitant]
     Active Substance: TRAMADOL
     Indication: CELLULITIS
     Dosage: 50 MG, 4X/DAY
     Route: 048
     Dates: start: 20150716
  14. FULVESTRANT. [Suspect]
     Active Substance: FULVESTRANT
     Indication: BREAST CANCER METASTATIC
     Dosage: 250 MG, EVERY 3 WEEKS
     Route: 058
     Dates: start: 20150331, end: 20150728
  15. LANSOPRAZOLE. [Concomitant]
     Active Substance: LANSOPRAZOLE
     Dosage: 15 MG, 1X/DAY
     Route: 048
     Dates: start: 20160412
  16. METRONIDAZOLE. [Concomitant]
     Active Substance: METRONIDAZOLE
     Indication: TOOTH EXTRACTION
     Dosage: 400 MG, 3X/DAY
     Dates: start: 20150916
  17. OMEPRAZOLE. [Concomitant]
     Active Substance: OMEPRAZOLE
     Dosage: 20 MG, 1X/DAY
     Route: 048
     Dates: start: 20150519, end: 20160412
  18. SENNA [Concomitant]
     Active Substance: SENNA LEAF\SENNOSIDES\SENNOSIDES A AND B
     Indication: LOWER RESPIRATORY TRACT INFECTION
     Dosage: 7.5 MG, 1X/DAY
     Route: 048
     Dates: start: 201603
  19. TAZOCIN [Concomitant]
     Active Substance: PIPERACILLIN SODIUM\TAZOBACTAM SODIUM
     Indication: LOWER RESPIRATORY TRACT INFECTION
     Dosage: UNK
     Route: 042
     Dates: start: 20160305, end: 201603
  20. TRASTUZUMAB. [Suspect]
     Active Substance: TRASTUZUMAB
     Indication: BREAST CANCER METASTATIC
     Dosage: 600 MG, EVERY 3 WEEKS
     Route: 058
     Dates: start: 20150819, end: 20160323
  21. ADCAL D3 [Concomitant]
     Active Substance: CALCIUM CARBONATE\CHOLECALCIFEROL
     Dosage: 1 DF, UNK
     Route: 048
     Dates: start: 201604
  22. COCODAMOL [Concomitant]
     Active Substance: ACETAMINOPHEN\CODEINE PHOSPHATE
     Indication: CELLULITIS
     Dosage: 2 DF, 4X/DAY
     Route: 048
     Dates: start: 201604
  23. CLARITHROMYCIN. [Concomitant]
     Active Substance: CLARITHROMYCIN
     Indication: LOWER RESPIRATORY TRACT INFECTION
     Dosage: UNK
     Dates: start: 20160305, end: 201603
  24. DIGOXIN. [Concomitant]
     Active Substance: DIGOXIN
     Dosage: 125 MG
     Route: 048
  25. FLUCLOXACILLIN [Concomitant]
     Active Substance: FLUCLOXACILLIN
     Indication: SKIN LACERATION
     Dosage: 500 MG, DAILY
     Route: 048
     Dates: start: 20160630, end: 20160707
  26. FLUCLOXACILLIN [Concomitant]
     Active Substance: FLUCLOXACILLIN
     Indication: SUPERINFECTION
     Dosage: 500 MG, 4X/DAY
     Route: 048
     Dates: start: 20160303, end: 201603
  27. PARACETAMOL [Concomitant]
     Active Substance: ACETAMINOPHEN
     Indication: ABDOMINAL PAIN
     Dosage: 1 G
     Route: 048
     Dates: start: 20160303
  28. ANASTROZOLE. [Suspect]
     Active Substance: ANASTROZOLE
     Indication: BREAST CANCER METASTATIC
     Dosage: 25 MG, 1X/DAY
     Route: 048
     Dates: start: 20160113
  29. GLYCEROL [Concomitant]
     Active Substance: GLYCERIN
     Indication: CONSTIPATION
     Dosage: 4 G, 2X/DAY (2 OTHER)
     Route: 054
     Dates: start: 20150819
  30. BENDROFLUMETHIAZIDE [Concomitant]
     Active Substance: BENDROFLUMETHIAZIDE
     Indication: HYPERTENSION
     Dosage: 2.5 MG, 1X/DAY
     Route: 048
     Dates: start: 20160412
  31. DIGOXIN. [Concomitant]
     Active Substance: DIGOXIN
     Dosage: 125 MG, 1X/DAY
     Route: 048
     Dates: start: 20150519
  32. DENOSUMAB [Suspect]
     Active Substance: DENOSUMAB
     Indication: BREAST CANCER METASTATIC
     Dosage: 120 MG, MONTHLY
     Route: 058
     Dates: start: 20150602
  33. DOCUSATE SODIUM. [Concomitant]
     Active Substance: DOCUSATE SODIUM
     Indication: LOWER RESPIRATORY TRACT INFECTION
     Dosage: 100 MG, 2X/DAY
     Route: 048
     Dates: start: 201603
  34. LETROZOLE. [Suspect]
     Active Substance: LETROZOLE
     Indication: BREAST CANCER METASTATIC
     Dosage: 2.5 MG, 1X/DAY
     Route: 048
     Dates: start: 20150819, end: 20160113
  35. MACROGOL [Concomitant]
     Active Substance: POLYETHYLENE GLYCOLS
     Indication: CONSTIPATION PROPHYLAXIS
     Dosage: 2 DF, 2X//DAY (2 OTHER)
     Route: 048
     Dates: start: 20150819
  36. COCODAMOL [Concomitant]
     Active Substance: ACETAMINOPHEN\CODEINE PHOSPHATE
     Dosage: 2 DF, 4X/DAY
     Dates: start: 20150716
  37. LACTULOSE. [Concomitant]
     Active Substance: LACTULOSE
     Dosage: 15 ML, 2X/DAY
     Route: 048
     Dates: start: 20150716
  38. PARACETAMOL [Concomitant]
     Active Substance: ACETAMINOPHEN
     Indication: LOWER RESPIRATORY TRACT INFECTION
     Dosage: 1 G, 4X/DAY
     Route: 048
     Dates: start: 20160714
  39. ASPIRIN. [Concomitant]
     Active Substance: ASPIRIN
  40. SENNA [Concomitant]
     Active Substance: SENNA LEAF\SENNOSIDES\SENNOSIDES A AND B

REACTIONS (24)
  - Ejection fraction decreased [Not Recovered/Not Resolved]
  - Staphylococcal infection [Unknown]
  - Aphasia [Unknown]
  - Headache [Recovered/Resolved]
  - Abdominal pain lower [Recovered/Resolved]
  - Lethargy [Unknown]
  - Cerebrovascular accident [Recovered/Resolved]
  - Abdominal pain [Not Recovered/Not Resolved]
  - Asthenia [Not Recovered/Not Resolved]
  - Nausea [Not Recovered/Not Resolved]
  - Dyspnoea [Unknown]
  - Swelling face [Not Recovered/Not Resolved]
  - Hypertension [Recovered/Resolved]
  - Headache [Not Recovered/Not Resolved]
  - Mouth swelling [Recovered/Resolved]
  - Skin laceration [Unknown]
  - Cellulitis [Recovered/Resolved]
  - Superinfection [Recovering/Resolving]
  - Decreased appetite [Unknown]
  - Vomiting [Not Recovered/Not Resolved]
  - Cough [Recovered/Resolved]
  - Lower respiratory tract infection [Recovered/Resolved]
  - Urinary tract infection [Not Recovered/Not Resolved]
  - Pain in extremity [Not Recovered/Not Resolved]

NARRATIVE: CASE EVENT DATE: 20150705
